FAERS Safety Report 21267091 (Version 1)
Quarter: 2022Q3

REPORT INFORMATION
  Report Type: Spontaneous
  Country: US (occurrence: US)
  Receive Date: 20220829
  Receipt Date: 20220829
  Transmission Date: 20221027
  Serious: Yes (Other)
  Sender: FDA-Public Use
  Company Number: US-JNJFOC-20220843535

PATIENT
  Sex: Female

DRUGS (3)
  1. OPSUMIT [Suspect]
     Active Substance: MACITENTAN
     Indication: Pulmonary hypertension
     Route: 048
     Dates: start: 20211017
  2. ADEMPAS [Suspect]
     Active Substance: RIOCIGUAT
     Indication: Product used for unknown indication
     Route: 065
  3. ADEMPAS [Suspect]
     Active Substance: RIOCIGUAT
     Route: 065

REACTIONS (10)
  - Renal impairment [Unknown]
  - Cardiac failure [Unknown]
  - Neuropathy peripheral [Unknown]
  - Anaemia [Unknown]
  - Rectal haemorrhage [Unknown]
  - Fluid retention [Unknown]
  - Respiratory disorder [Unknown]
  - Memory impairment [Unknown]
  - Weight decreased [Unknown]
  - COVID-19 [Unknown]
